FAERS Safety Report 5125748-5 (Version None)
Quarter: 2006Q4

REPORT INFORMATION
  Report Type: 
  Country: None (occurrence: None)
  Receive Date: 20061012
  Receipt Date: 20060928
  Transmission Date: 20070319
  Serious: Yes (Other)
  Sender: FDA-Public Use
  Company Number: PHBS2006US15386

PATIENT
  Age: 30 Year
  Sex: Female

DRUGS (9)
  1. METOPROLOL TARTRATE [Suspect]
     Indication: POSTURAL ORTHOSTATIC TACHYCARDIA SYNDROME
     Dosage: 100 MG/DAY
     Route: 065
  2. METOPROLOL TARTRATE [Suspect]
     Dosage: 150 MG/DAY
     Route: 065
  3. RINGER'S [Concomitant]
  4. BUPIVACAINE [Concomitant]
  5. FENTANYL [Concomitant]
  6. HETASTARCH IN SODIUM CHLORIDE [Concomitant]
  7. LIDOCAINE [Concomitant]
  8. SODIUM BICARBONATE IN PLASTIC CONTAINER [Concomitant]
  9. OXYTOCIN [Concomitant]

REACTIONS (9)
  - BLOOD PRESSURE INCREASED [None]
  - CAESAREAN SECTION [None]
  - CONDITION AGGRAVATED [None]
  - DIZZINESS [None]
  - DRUG EXPOSURE DURING PREGNANCY [None]
  - DYSPNOEA EXERTIONAL [None]
  - FATIGUE [None]
  - HEART RATE INCREASED [None]
  - NORMAL NEWBORN [None]
